FAERS Safety Report 9785825 (Version 1)
Quarter: 2013Q4

REPORT INFORMATION
  Report Type: Spontaneous
  Country: ES (occurrence: None)
  Receive Date: 20131223
  Receipt Date: 20131223
  Transmission Date: 20140711
  Serious: Yes (Other)
  Sender: FDA-Public Use
  Company Number: 2013ES00846

PATIENT
  Sex: Female

DRUGS (3)
  1. CARBOPLATIN (CARBOPLATIN) [Suspect]
     Indication: OVARIAN CANCER
     Dosage: AREA UNDER THE CURVE 6 [AUC6] DAY 1 EVERY 3 WEEKS, INTRAVENOUS
  2. BEVACIZUMAB (BEVACIZUMAB) [Suspect]
     Indication: OVARIAN CANCER
     Dosage: 7.5 MG/KG, DAY 1 EVERY 3 WEEKS FOR UP TO A TOTAL OF 17 CYLES, INTRAVENOUS
  3. PACLITAXEL (PACLITAXEL) [Suspect]
     Indication: OVARIAN CANCER
     Dosage: 80 MG/M2, DAYS 1, 8 AND 15 EVERY 3 WEEKS, INTRAVENOUS

REACTIONS (1)
  - Gastrointestinal perforation [None]
